FAERS Safety Report 20500080 (Version 4)
Quarter: 2022Q1

REPORT INFORMATION
  Report Type: Spontaneous
  Country: US (occurrence: US)
  Receive Date: 20220222
  Receipt Date: 20220331
  Transmission Date: 20220423
  Serious: Yes (Other)
  Sender: FDA-Public Use
  Company Number: US-BIOVITRUM-2022US01980

PATIENT
  Age: 0 Year
  Sex: Male

DRUGS (2)
  1. SYNAGIS [Suspect]
     Active Substance: PALIVIZUMAB
     Indication: Premature baby
     Route: 030
     Dates: start: 20211208
  2. SYNAGIS [Suspect]
     Active Substance: PALIVIZUMAB
     Dates: start: 20220304

REACTIONS (5)
  - Hepatic cyst [Unknown]
  - Hepatic haematoma [Unknown]
  - Hepatic function abnormal [Unknown]
  - Hepatic mass [Unknown]
  - Inappropriate schedule of product administration [Unknown]

NARRATIVE: CASE EVENT DATE: 20211208
